FAERS Safety Report 7477792-0 (Version None)
Quarter: 2011Q2

REPORT INFORMATION
  Report Type: 
  Country: None (occurrence: None)
  Receive Date: 20110513
  Receipt Date: 20110504
  Transmission Date: 20111010
  Serious: Yes (Hospitalization)
  Sender: FDA-Public Use
  Company Number: US-ELI_LILLY_AND_COMPANY-US201105001434

PATIENT
  Sex: Male

DRUGS (3)
  1. HUMULIN N [Suspect]
     Indication: DIABETES MELLITUS
     Dosage: 15 U, EACH MORNING
     Dates: start: 20101201
  2. LANTUS [Concomitant]
     Dosage: UNK
  3. ACTOS [Concomitant]
     Dosage: 45 MG, UNK

REACTIONS (3)
  - PALPITATIONS [None]
  - HEART RATE INCREASED [None]
  - BLOOD PRESSURE INCREASED [None]
